FAERS Safety Report 7106683-X (Version None)
Quarter: 2010Q4

REPORT INFORMATION
  Report Type: 
  Country: None (occurrence: None)
  Receive Date: 20101116
  Receipt Date: 20101019
  Transmission Date: 20110411
  Serious: No
  Sender: FDA-Public Use
  Company Number: US-ABBOTT-10P-163-0679361-00

PATIENT
  Sex: Male

DRUGS (5)
  1. SIMCOR [Suspect]
     Indication: DYSLIPIDAEMIA
     Dosage: 500/20MG, AT BEDTIME
     Route: 048
     Dates: start: 20100201
  2. SIMCOR [Suspect]
     Dosage: 500/20MG, 2 AT BEDTIME
     Route: 048
     Dates: start: 20100501
  3. SIMCOR [Suspect]
     Dosage: 500/20MG, 3 AT BEDTIME
     Route: 048
  4. NEXIUM [Concomitant]
     Indication: PRODUCT USED FOR UNKNOWN INDICATION
     Route: 048
  5. ALLOPURINOL [Concomitant]
     Indication: PRODUCT USED FOR UNKNOWN INDICATION
     Route: 048

REACTIONS (4)
  - ERYTHEMA [None]
  - FLUSHING [None]
  - PARAESTHESIA [None]
  - PRURITUS [None]
